FAERS Safety Report 23387237 (Version 1)
Quarter: 2024Q1

REPORT INFORMATION
  Report Type: Spontaneous
  Country: US (occurrence: None)
  Receive Date: 20240109
  Receipt Date: 20240109
  Transmission Date: 20240410
  Serious: Yes (Other)
  Sender: FDA-Public Use
  Company Number: None

PATIENT
  Age: 68 Year
  Sex: Female
  Weight: 100 kg

DRUGS (4)
  1. PAXLOVID [Suspect]
     Active Substance: NIRMATRELVIR\RITONAVIR
     Indication: COVID-19
     Dates: start: 20221208, end: 20221208
  2. VITAMIN D NOS [Concomitant]
     Active Substance: VITAMIN D NOS
  3. CALCIUM [Concomitant]
     Active Substance: CALCIUM
  4. (unsweetened) hibiscus tea as sialogogue [Concomitant]

REACTIONS (6)
  - Delirium [None]
  - Anxiety [None]
  - Mental disorder [None]
  - Disturbance in attention [None]
  - Decreased activity [None]
  - Cognitive disorder [None]

NARRATIVE: CASE EVENT DATE: 20221209
